FAERS Safety Report 4911398-X (Version None)
Quarter: 2006Q1

REPORT INFORMATION
  Report Type: 
  Country: None (occurrence: None)
  Receive Date: 20060113
  Receipt Date: 20051107
  Transmission Date: 20060701
  Serious: No
  Sender: FDA-Public Use
  Company Number: 2005SP003881

PATIENT
  Age: 76 Year
  Sex: Male

DRUGS (6)
  1. LUNESTA [Suspect]
     Indication: INSOMNIA
     Dosage: 3 MG; HS; SUBLINGUAL
     Route: 060
     Dates: start: 20051130, end: 20051130
  2. LUNESTA [Suspect]
     Indication: INSOMNIA
     Dosage: 3 MG; HS; SUBLINGUAL
     Route: 060
     Dates: start: 20051001
  3. ADALAT [Concomitant]
  4. SIMVASTATIN [Concomitant]
  5. CELEXA [Concomitant]
  6. ZYPREXA [Concomitant]

REACTIONS (3)
  - DRUG INEFFECTIVE [None]
  - DYSGEUSIA [None]
  - INSOMNIA [None]
